FAERS Safety Report 17528442 (Version 2)
Quarter: 2020Q2

REPORT INFORMATION
  Report Type: Spontaneous
  Country: DE (occurrence: DE)
  Receive Date: 20200312
  Receipt Date: 20200508
  Transmission Date: 20200713
  Serious: Yes (Other)
  Sender: FDA-Public Use
  Company Number: DE-AUROBINDO-AUR-APL-2020-004707

PATIENT
  Age: 40 Year
  Sex: Female
  Weight: 77 kg

DRUGS (6)
  1. PREGABALIN PFIZER [Suspect]
     Active Substance: PREGABALIN
     Dosage: 50 MILLIGRAM, ONCE A DAY(0-0-1 )
     Route: 065
  2. PREGABALIN PFIZER [Suspect]
     Active Substance: PREGABALIN
     Dosage: 150 MILLIGRAM, TWO TIMES A DAY(1-0-1) (300 MG ONCE A DAY)
     Route: 065
     Dates: start: 201912
  3. PREGABALIN PFIZER [Suspect]
     Active Substance: PREGABALIN
     Indication: NEUROPATHY PERIPHERAL
     Dosage: 50 MILLIGRAM, 3 TIMES A DAY (150 MILLIGRAM, ONCE A DAY)
     Route: 065
  4. PREGABALIN PFIZER [Suspect]
     Active Substance: PREGABALIN
     Dosage: 50 MILLIGRAM, 3 TIMES A DAY(150 MG ONCE A DAY, 1-1-1)
     Route: 065
  5. DULOXETINE 30 MG [Suspect]
     Active Substance: DULOXETINE
     Indication: PRODUCT USED FOR UNKNOWN INDICATION
     Dosage: 30 MILLIGRAM, TWO TIMES A DAY (60 MILLIGRAM, ONCE A DAY) 2-0-1
     Route: 065
     Dates: start: 2010
  6. PREGABALIN PFIZER [Suspect]
     Active Substance: PREGABALIN
     Indication: NEURALGIA
     Dosage: 150 MILLIGRAM, TWO TIMES A DAY (300 MILLIGRAM, ONCE A DAY)
     Route: 065
     Dates: start: 2010

REACTIONS (3)
  - Pain [Not Recovered/Not Resolved]
  - Drug ineffective [Not Recovered/Not Resolved]
  - Neuropathy peripheral [Not Recovered/Not Resolved]

NARRATIVE: CASE EVENT DATE: 201912
